FAERS Safety Report 15749068 (Version 9)
Quarter: 2019Q1

REPORT INFORMATION
  Report Type: Spontaneous
  Country: US (occurrence: US)
  Receive Date: 20181221
  Receipt Date: 20190123
  Transmission Date: 20190417
  Serious: No
  Sender: FDA-Public Use
  Company Number: US-UNITED THERAPEUTICS-UNT-2018-020530

PATIENT
  Age: 54 Year
  Sex: Female
  Weight: 71.2 kg

DRUGS (7)
  1. TADALAFIL. [Concomitant]
     Active Substance: TADALAFIL
     Indication: PRODUCT USED FOR UNKNOWN INDICATION
     Dosage: UNK
     Route: 065
  2. REMODULIN [Suspect]
     Active Substance: TREPROSTINIL
     Indication: PULMONARY ARTERIAL HYPERTENSION
     Dosage: 0.016 ?G/KG, CONTINUING
     Route: 041
     Dates: start: 20181210
  3. REMODULIN [Suspect]
     Active Substance: TREPROSTINIL
     Dosage: 0.019 ?G/KG, CONTINUING AT A RATE OF 40 ML/24HR
     Route: 041
  4. REMODULIN [Suspect]
     Active Substance: TREPROSTINIL
     Dosage: 0.0185 ?G/KG, CONTINUING
     Route: 041
     Dates: start: 201812
  5. REMODULIN [Suspect]
     Active Substance: TREPROSTINIL
     Dosage: 0.017 ?G/KG, CONTINUING
     Route: 041
     Dates: start: 20181217
  6. REMODULIN [Suspect]
     Active Substance: TREPROSTINIL
     Dosage: 0.018 ?G/KG, CONTINUING
     Route: 041
  7. REMODULIN [Suspect]
     Active Substance: TREPROSTINIL
     Dosage: 0.0175 ?G/KG, CONTINUING
     Route: 041

REACTIONS (10)
  - Vision blurred [Unknown]
  - Tremor [Unknown]
  - Blood uric acid increased [Unknown]
  - Migraine [Unknown]
  - Pain in extremity [Not Recovered/Not Resolved]
  - Toothache [Unknown]
  - Paraesthesia [Unknown]
  - Diplopia [Unknown]
  - Photosensitivity reaction [Unknown]
  - Peripheral swelling [Recovered/Resolved]

NARRATIVE: CASE EVENT DATE: 201812
